FAERS Safety Report 10934706 (Version 2)
Quarter: 2015Q1

REPORT INFORMATION
  Report Type: Other
  Country: CA (occurrence: CA)
  Receive Date: 20150320
  Receipt Date: 20150324
  Transmission Date: 20150721
  Serious: Yes (Other)
  Sender: FDA-Public Use
  Company Number: CA-TARO PHARMACEUTICALS U.S.A., INC-2015SUN00792

PATIENT
  Age: 66 Year
  Sex: Male
  Weight: 72.56 kg

DRUGS (2)
  1. BETADERM [Concomitant]
     Active Substance: BETAMETHASONE VALERATE
     Route: 061
  2. TARO-MUPIROCIN OINTMENT 2% [Suspect]
     Active Substance: MUPIROCIN
     Indication: INFECTION
     Dosage: 3 APPLICATIONS EVERY DAY
     Route: 061

REACTIONS (4)
  - Application site erythema [Recovered/Resolved]
  - Urticaria [Recovered/Resolved]
  - Alopecia [Recovered/Resolved]
  - Application site pruritus [Recovered/Resolved]
